FAERS Safety Report 6497178-5 (Version None)
Quarter: 2009Q4

REPORT INFORMATION
  Report Type: 
  Country: None (occurrence: None)
  Receive Date: 20091215
  Receipt Date: 20090513
  Transmission Date: 20100525
  Serious: No
  Sender: FDA-Public Use
  Company Number: A0785143A

PATIENT
  Age: 79 Year
  Sex: Male

DRUGS (5)
  1. AVODART [Suspect]
     Indication: BENIGN PROSTATIC HYPERPLASIA
     Dosage: .5MG UNKNOWN
     Route: 048
     Dates: end: 20090401
  2. TOPROL-XL [Concomitant]
  3. VITAMINS [Concomitant]
  4. ANTIOXIDANTS [Concomitant]
  5. ASPIRIN [Concomitant]

REACTIONS (1)
  - RETROGRADE EJACULATION [None]
